FAERS Safety Report 15894499 (Version 1)
Quarter: 2019Q1

REPORT INFORMATION
  Report Type: Spontaneous
  Country: CN (occurrence: CN)
  Receive Date: 20190131
  Receipt Date: 20190131
  Transmission Date: 20190417
  Serious: Yes (Life-Threatening, Hospitalization, Disabling)
  Sender: FDA-Public Use
  Company Number: CN-SANIK-2019SA027476AA

PATIENT
  Age: 52 Year
  Sex: Male
  Weight: 70 kg

DRUGS (3)
  1. SODIUM CHLORIDE. [Concomitant]
     Active Substance: SODIUM CHLORIDE
     Dosage: 100 ML, QD
     Route: 041
     Dates: start: 20181128, end: 20181207
  2. ALPROSTADIL. [Suspect]
     Active Substance: ALPROSTADIL
     Dosage: 10 UG, QD
     Route: 041
     Dates: start: 20181128, end: 20181207
  3. PLAVIX [Suspect]
     Active Substance: CLOPIDOGREL BISULFATE
     Indication: PLATELET AGGREGATION
     Dosage: 75 MG, QD
     Route: 048
     Dates: start: 20181128, end: 20181210

REACTIONS (1)
  - Herpes dermatitis [Recovered/Resolved with Sequelae]

NARRATIVE: CASE EVENT DATE: 20181206
